FAERS Safety Report 6041645-5 (Version None)
Quarter: 2009Q1

REPORT INFORMATION
  Report Type: 
  Country: None (occurrence: None)
  Receive Date: 20090116
  Receipt Date: 20081028
  Transmission Date: 20090719
  Serious: No
  Sender: FDA-Public Use
  Company Number: US-BRISTOL-MYERS SQUIBB COMPANY-14388425

PATIENT
  Age: 52 Year
  Sex: Female

DRUGS (7)
  1. ABILIFY [Suspect]
     Indication: BIPOLAR DISORDER
     Dosage: DOSE REDUCED TO 12.5MG
     Dates: start: 20080306
  2. ABILIFY [Suspect]
     Indication: ANXIETY DISORDER
     Dosage: DOSE REDUCED TO 12.5MG
     Dates: start: 20080306
  3. ABILIFY [Suspect]
     Indication: ATTENTION DEFICIT/HYPERACTIVITY DISORDER
     Dosage: DOSE REDUCED TO 12.5MG
     Dates: start: 20080306
  4. LAMICTAL [Concomitant]
  5. SEROQUEL [Concomitant]
  6. NEURONTIN [Concomitant]
  7. ADDERALL 10 [Concomitant]

REACTIONS (1)
  - TREMOR [None]
